FAERS Safety Report 7432446-1 (Version None)
Quarter: 2011Q2

REPORT INFORMATION
  Report Type: 
  Country: None (occurrence: None)
  Receive Date: 20110414
  Receipt Date: 20110304
  Transmission Date: 20111010
  Serious: Yes (Hospitalization)
  Sender: FDA-Public Use
  Company Number: 2011-0251

PATIENT
  Sex: Male

DRUGS (1)
  1. APOKYN [Suspect]
     Indication: PRODUCT USED FOR UNKNOWN INDICATION
     Dosage: 0.70 ML/HOUR FOR 15 HOURS/DAY AND  BOLUS OF 0.81 ML (CONTINUOUS INFUSION 7AM TO 10PM/DAY, SUBCUTANEO
     Route: 058
     Dates: start: 20081016

REACTIONS (2)
  - HALLUCINATION [None]
  - GAZE PALSY [None]
